FAERS Safety Report 5431367-3 (Version None)
Quarter: 2007Q3

REPORT INFORMATION
  Report Type: 
  Country: None (occurrence: None)
  Receive Date: 20070830
  Receipt Date: 20070509
  Transmission Date: 20080115
  Serious: No
  Sender: FDA-Public Use
  Company Number: A0650665A

PATIENT
  Age: 57 Year
  Sex: Female

DRUGS (4)
  1. WELLBUTRIN XL [Suspect]
     Indication: DEPRESSION
     Dosage: 150MG PER DAY
     Route: 048
     Dates: start: 20070509
  2. LUNESTA [Suspect]
     Indication: DRUG USE FOR UNKNOWN INDICATION
  3. NEURONTIN [Suspect]
     Indication: DRUG USE FOR UNKNOWN INDICATION
  4. TOPROL-XL [Suspect]
     Indication: DRUG USE FOR UNKNOWN INDICATION

REACTIONS (6)
  - CONFUSIONAL STATE [None]
  - DRUG INTERACTION [None]
  - HYPERHIDROSIS [None]
  - LISTLESS [None]
  - OEDEMA PERIPHERAL [None]
  - SOMNOLENCE [None]
